FAERS Safety Report 5907301-6 (Version None)
Quarter: 2008Q4

REPORT INFORMATION
  Report Type: 
  Country: None (occurrence: None)
  Receive Date: 20081003
  Receipt Date: 20080930
  Transmission Date: 20090506
  Serious: Yes (Death, Hospitalization)
  Sender: FDA-Public Use
  Company Number: PHBS2008ES05864

PATIENT
  Age: 46 Year
  Sex: Male

DRUGS (4)
  1. CYCLOSPORINE [Suspect]
     Indication: STEM CELL TRANSPLANT
  2. METHOTREXATE [Suspect]
     Indication: STEM CELL TRANSPLANT
  3. BUSULFAN [Concomitant]
  4. CYCLOPHOSPHAMIDE [Concomitant]

REACTIONS (9)
  - ADENOVIRAL HEPATITIS [None]
  - ADENOVIRUS INFECTION [None]
  - BACTERIAL INFECTION [None]
  - HEPATIC NECROSIS [None]
  - HEPATITIS FULMINANT [None]
  - LIVER FUNCTION TEST ABNORMAL [None]
  - MULTI-ORGAN FAILURE [None]
  - PYREXIA [None]
  - VIRAL INFECTION [None]
